FAERS Safety Report 11025257 (Version 7)
Quarter: 2020Q1

REPORT INFORMATION
  Report Type: Spontaneous
  Country: US (occurrence: US)
  Receive Date: 20150414
  Receipt Date: 20200310
  Transmission Date: 20200409
  Serious: Yes (Hospitalization)
  Sender: FDA-Public Use
  Company Number: US-PFIZER INC-2015075723

PATIENT
  Age: 66 Year
  Sex: Female
  Weight: 49.9 kg

DRUGS (11)
  1. OMEPRAZOLE. [Concomitant]
     Active Substance: OMEPRAZOLE
     Indication: GASTROOESOPHAGEAL REFLUX DISEASE
     Dosage: 20 MG, DAILY
     Route: 048
     Dates: start: 2008
  2. OMEPRAZOLE. [Concomitant]
     Active Substance: OMEPRAZOLE
     Dosage: 10 MG, 1X/DAY
  3. OXYCODONE [Concomitant]
     Active Substance: OXYCODONE
     Dosage: 10 MG, FIVE TIMES DAILY
     Route: 048
     Dates: start: 2003
  4. DULOXETINE. [Concomitant]
     Active Substance: DULOXETINE
     Indication: DEPRESSION
     Dosage: 60 MG, 1X/DAY
     Route: 048
  5. REVATIO [Suspect]
     Active Substance: SILDENAFIL CITRATE
     Indication: SCLERODERMA
     Dosage: UNK
  6. CYMBALTA [Suspect]
     Active Substance: DULOXETINE HYDROCHLORIDE
     Dosage: 30 MG, 1X/DAY
     Dates: start: 201412
  7. CELEXA [Concomitant]
     Active Substance: CITALOPRAM HYDROBROMIDE
     Dosage: 90 MG, DAILY
     Route: 048
  8. PERCOCET [Concomitant]
     Active Substance: ACETAMINOPHEN\OXYCODONE HYDROCHLORIDE
     Indication: PAIN
     Dosage: 1 DF, AS NEEDED [OXYCODONE : 10 MG/PARACETAMOL: 325 MG]1 EVERY 4 HOURS AS NEEDED
  9. CYMBALTA [Suspect]
     Active Substance: DULOXETINE HYDROCHLORIDE
     Indication: DEPRESSION
     Dosage: 60 MG, 1X/DAY
     Dates: start: 201412
  10. REVATIO [Suspect]
     Active Substance: SILDENAFIL CITRATE
     Indication: RAYNAUD^S PHENOMENON
     Dosage: 20 MG, 3X/DAY
     Route: 048
     Dates: start: 2011
  11. OMEPRAZOLE. [Concomitant]
     Active Substance: OMEPRAZOLE
     Dosage: UNK

REACTIONS (8)
  - Off label use [Not Recovered/Not Resolved]
  - Pyrexia [Recovered/Resolved]
  - Rhinorrhoea [Not Recovered/Not Resolved]
  - Influenza [Recovering/Resolving]
  - Nasopharyngitis [Not Recovered/Not Resolved]
  - Nasal congestion [Not Recovered/Not Resolved]
  - Cough [Recovering/Resolving]
  - Product use in unapproved indication [Not Recovered/Not Resolved]

NARRATIVE: CASE EVENT DATE: 2011
